FAERS Safety Report 7530126-5 (Version None)
Quarter: 2011Q2

REPORT INFORMATION
  Report Type: 
  Country: None (occurrence: None)
  Receive Date: 20110607
  Receipt Date: 20110128
  Transmission Date: 20111010
  Serious: Yes (Hospitalization, Other)
  Sender: FDA-Public Use
  Company Number: US-BAYER-201040534NA

PATIENT
  Age: 17 Year
  Sex: Female
  Weight: 77.551 kg

DRUGS (2)
  1. DROSPIRENONE AND ETHINYL ESTRADIOL [Suspect]
     Indication: ACNE
  2. YASMIN [Suspect]
     Dosage: UNK
     Dates: start: 20050101, end: 20080101

REACTIONS (7)
  - CHOLELITHIASIS [None]
  - PAIN [None]
  - GALLBLADDER DISORDER [None]
  - NAUSEA [None]
  - CHOLECYSTITIS [None]
  - CHOLECYSTITIS CHRONIC [None]
  - ABDOMINAL PAIN UPPER [None]
